FAERS Safety Report 7029198-6 (Version None)
Quarter: 2010Q3

REPORT INFORMATION
  Report Type: 
  Country: None (occurrence: None)
  Receive Date: 20100930
  Receipt Date: 20100918
  Transmission Date: 20110219
  Serious: Yes (Hospitalization, Other)
  Sender: FDA-Public Use
  Company Number: 2010AP002031

PATIENT
  Age: 59 Year
  Sex: Female

DRUGS (6)
  1. CIMETIDINE HCL [Suspect]
     Indication: GASTROOESOPHAGEAL REFLUX DISEASE
  2. METFORMIN HYDROCHLORIDE [Suspect]
  3. FENOFIBRATE [Concomitant]
  4. LISINOPRIL [Concomitant]
  5. FLUVASTATIN [Concomitant]
  6. ATENOLOL [Concomitant]

REACTIONS (17)
  - ALANINE AMINOTRANSFERASE INCREASED [None]
  - ANION GAP INCREASED [None]
  - ASPARTATE AMINOTRANSFERASE INCREASED [None]
  - BLOOD LACTATE DEHYDROGENASE INCREASED [None]
  - BLOOD MAGNESIUM DECREASED [None]
  - BLOOD PHOSPHORUS INCREASED [None]
  - BLOOD POTASSIUM INCREASED [None]
  - BLOOD PRESSURE DIASTOLIC DECREASED [None]
  - CARBON DIOXIDE DECREASED [None]
  - CARDIAC MURMUR [None]
  - DIALYSIS [None]
  - DIARRHOEA [None]
  - DRUG INTERACTION [None]
  - HAEMOGLOBIN DECREASED [None]
  - LACTIC ACIDOSIS [None]
  - PANCREATITIS [None]
  - RENAL FAILURE ACUTE [None]
